FAERS Safety Report 10989402 (Version 3)
Quarter: 2015Q2

REPORT INFORMATION
  Report Type: Spontaneous
  Country: US (occurrence: US)
  Receive Date: 20150406
  Receipt Date: 20150522
  Transmission Date: 20150821
  Serious: Yes (Other)
  Sender: FDA-Public Use
  Company Number: US-PFIZER INC-2015113974

PATIENT
  Age: 75 Year
  Sex: Male
  Weight: 91 kg

DRUGS (9)
  1. LOVASTATIN. [Concomitant]
     Active Substance: LOVASTATIN
     Dosage: UNK
  2. HUMALOG [Concomitant]
     Active Substance: INSULIN LISPRO
     Dosage: UNK, AS NEEDED
  3. LISINOPRIL. [Concomitant]
     Active Substance: LISINOPRIL
     Dosage: UNK
  4. LYRICA [Suspect]
     Active Substance: PREGABALIN
     Indication: DIABETIC NEUROPATHY
     Dosage: 150 MG, 1X/DAY
  5. HYDROCHLOROTHIAZIDE. [Concomitant]
     Active Substance: HYDROCHLOROTHIAZIDE
     Dosage: UNK
  6. LYRICA [Suspect]
     Active Substance: PREGABALIN
     Indication: NEURALGIA
     Dosage: UNK
  7. LYRICA [Suspect]
     Active Substance: PREGABALIN
     Indication: INSOMNIA
  8. HUMULIN N [Concomitant]
     Active Substance: INSULIN HUMAN
     Dosage: UNK, 2X/DAY
  9. TYLENOL #4 WITH CODEINE [Concomitant]
     Dosage: UNK

REACTIONS (8)
  - Insomnia [Unknown]
  - Hallucination [Recovered/Resolved]
  - Peripheral swelling [Unknown]
  - Bradyphrenia [Unknown]
  - Head discomfort [Unknown]
  - Somnolence [Unknown]
  - Mental impairment [Unknown]
  - Drug effect incomplete [Unknown]
